FAERS Safety Report 12650642 (Version 2)
Quarter: 2016Q3

REPORT INFORMATION
  Report Type: Spontaneous
  Country: FR (occurrence: FR)
  Receive Date: 20160815
  Receipt Date: 20160908
  Transmission Date: 20161109
  Serious: Yes (Hospitalization, Other)
  Sender: FDA-Public Use
  Company Number: FR-BAXTER-2016BAX041360

PATIENT
  Age: 17 Year
  Sex: Female

DRUGS (8)
  1. CONCERTA LP [Suspect]
     Active Substance: METHYLPHENIDATE HYDROCHLORIDE
     Indication: ATTENTION DEFICIT/HYPERACTIVITY DISORDER
     Route: 048
  2. ZOLOFT [Concomitant]
     Active Substance: SERTRALINE HYDROCHLORIDE
     Indication: DEPRESSION
     Route: 048
  3. SEVOFLURANE BAXTER 1 ML/ML, LIQUIDE POUR INHALATION PAR VAPEUR [Suspect]
     Active Substance: SEVOFLURANE
     Indication: GENERAL ANAESTHESIA
     Route: 055
     Dates: start: 20160720, end: 20160720
  4. PROPOFOL. [Suspect]
     Active Substance: PROPOFOL
     Indication: SEDATION
     Route: 065
     Dates: start: 20160720
  5. DANTROLENE [Suspect]
     Active Substance: DANTROLENE
     Indication: ADVERSE EVENT
     Dosage: FIRST INJECTION
     Route: 065
     Dates: start: 20160720
  6. DANTROLENE [Suspect]
     Active Substance: DANTROLENE
     Dosage: SECOND INJECTION WAS GIVEN AFTER 4 HOURS
     Route: 065
     Dates: start: 20160720
  7. CONCERTA LP [Suspect]
     Active Substance: METHYLPHENIDATE HYDROCHLORIDE
     Indication: AUTISM SPECTRUM DISORDER
  8. ZOLOFT [Concomitant]
     Active Substance: SERTRALINE HYDROCHLORIDE
     Indication: AUTISM SPECTRUM DISORDER

REACTIONS (11)
  - Muscle tightness [Recovered/Resolved]
  - Respiratory distress [Unknown]
  - Haemorrhage [Unknown]
  - Face oedema [Recovering/Resolving]
  - Hypercapnia [Recovered/Resolved]
  - Hyperpyrexia [Recovered/Resolved]
  - Lacrimal haemorrhage [Unknown]
  - Hyperlactacidaemia [Recovered/Resolved]
  - Haemolysis [Unknown]
  - Aspiration [Unknown]
  - Laryngeal oedema [Unknown]

NARRATIVE: CASE EVENT DATE: 201607
